FAERS Safety Report 10102660 (Version 2)
Quarter: 2014Q2

REPORT INFORMATION
  Report Type: Report from Study
  Country: CA (occurrence: CA)
  Receive Date: 20140424
  Receipt Date: 20140609
  Transmission Date: 20141212
  Serious: Yes (Disabling)
  Sender: FDA-Public Use
  Company Number: CA-JNJFOC-20140412516

PATIENT
  Age: 70 Year
  Sex: Female
  Weight: 95 kg

DRUGS (17)
  1. REMICADE [Suspect]
     Indication: COLITIS ULCERATIVE
     Dosage: 500 MG AT WEEK 0, 2, 6 AND THEN ONCE EVERY 8 WEEKS
     Route: 042
     Dates: end: 20131205
  2. REMICADE [Suspect]
     Indication: COLITIS ULCERATIVE
     Dosage: 500 MG AT WEEK 0, 2, 6 AND THEN ONCE EVERY 8 WEEKS
     Route: 042
     Dates: start: 20130828
  3. REMICADE [Suspect]
     Indication: COLITIS ULCERATIVE
     Dosage: 500 MG AT WEEK 0, 2, 6 AND THEN ONCE EVERY 8 WEEKS
     Route: 042
     Dates: start: 20130401
  4. REMICADE [Suspect]
     Indication: COLITIS ULCERATIVE
     Route: 042
     Dates: start: 201305
  5. REMICADE [Suspect]
     Indication: COLITIS ULCERATIVE
     Route: 042
     Dates: start: 201301, end: 201303
  6. 5-ASA [Concomitant]
     Route: 065
  7. HYDROCHLOROTHIAZIDE [Concomitant]
     Route: 065
  8. METOPROLOL [Concomitant]
     Route: 065
  9. FELODIPINE [Concomitant]
     Route: 065
  10. VASOTEC [Concomitant]
     Route: 065
  11. MEZAVANT [Concomitant]
     Route: 065
  12. SYNTHROID [Concomitant]
     Route: 065
  13. SALOFALK ENEMA [Concomitant]
     Route: 065
  14. ATIVAN [Concomitant]
     Route: 065
  15. CELEBREX [Concomitant]
     Route: 065
  16. DEMEROL [Concomitant]
     Indication: PREMEDICATION
     Route: 065
  17. BENADRYL [Concomitant]
     Indication: PREMEDICATION
     Route: 065

REACTIONS (7)
  - Hypoaesthesia [Recovering/Resolving]
  - Arthralgia [Recovered/Resolved]
  - Infusion related reaction [Recovering/Resolving]
  - Urticaria [Recovering/Resolving]
  - Dyspnoea [Recovering/Resolving]
  - Burning sensation [Recovering/Resolving]
  - Neuralgia [Recovering/Resolving]
